FAERS Safety Report 19425400 (Version 1)
Quarter: 2021Q2

REPORT INFORMATION
  Report Type: Report from Study
  Country: US (occurrence: US)
  Receive Date: 20210616
  Receipt Date: 20210616
  Transmission Date: 20210717
  Serious: Yes (Hospitalization)
  Sender: FDA-Public Use
  Company Number: US-BAYER-2021-158585

PATIENT
  Age: 77 Year
  Sex: Male
  Weight: 78.91 kg

DRUGS (4)
  1. ADEMPAS [Suspect]
     Active Substance: RIOCIGUAT
     Indication: PULMONARY ARTERIAL HYPERTENSION
     Dosage: UNK
     Dates: start: 20210127
  2. ADEMPAS [Suspect]
     Active Substance: RIOCIGUAT
     Indication: PULMONARY ARTERIAL HYPERTENSION
     Dosage: 2.5 MG, TID
     Route: 048
     Dates: start: 2021
  3. TRAMADOL. [Suspect]
     Active Substance: TRAMADOL
     Dosage: UNK
     Dates: start: 2021
  4. XARELTO [Concomitant]
     Active Substance: RIVAROXABAN
     Dosage: UNK

REACTIONS (3)
  - Ankle fracture [None]
  - Blood pressure decreased [None]
  - Loss of consciousness [None]

NARRATIVE: CASE EVENT DATE: 2021
